FAERS Safety Report 23466235 (Version 1)
Quarter: 2024Q1

REPORT INFORMATION
  Report Type: Spontaneous
  Country: PT (occurrence: PT)
  Receive Date: 20240201
  Receipt Date: 20240201
  Transmission Date: 20240410
  Serious: Yes (Hospitalization)
  Sender: FDA-Public Use
  Company Number: PT-MYLANLABS-2023M1114451

PATIENT
  Age: 15 Year
  Sex: Female

DRUGS (2)
  1. DIAZEPAM [Suspect]
     Active Substance: DIAZEPAM
     Indication: Cotard^s syndrome
     Dosage: 10 MILLIGRAM, QD
  2. OLANZAPINE [Suspect]
     Active Substance: OLANZAPINE
     Indication: Cotard^s syndrome
     Dosage: 5 MILLIGRAM, QD
     Route: 050

REACTIONS (2)
  - Thyroxine decreased [Recovered/Resolved]
  - Off label use [Recovered/Resolved]
